FAERS Safety Report 17205322 (Version 1)
Quarter: 2019Q4

REPORT INFORMATION
  Report Type: Spontaneous
  Country: GB (occurrence: GB)
  Receive Date: 20191227
  Receipt Date: 20191227
  Transmission Date: 20200122
  Serious: Yes (Other)
  Sender: FDA-Public Use
  Company Number: GB-ADVANZ PHARMA-201912003111

PATIENT

DRUGS (3)
  1. TOPIRAMATE. [Concomitant]
     Active Substance: TOPIRAMATE
     Dosage: UNK
  2. FROVATRIPTAN SUCCINATE. [Concomitant]
     Active Substance: FROVATRIPTAN SUCCINATE
     Dosage: UNK
  3. PREDNISOLONE. [Suspect]
     Active Substance: PREDNISOLONE
     Indication: ASTHMA
     Dosage: 40 MG
     Route: 048
     Dates: start: 20191209, end: 20191212

REACTIONS (2)
  - Post viral fatigue syndrome [Not Recovered/Not Resolved]
  - Tenderness [Not Recovered/Not Resolved]

NARRATIVE: CASE EVENT DATE: 20191211
